FAERS Safety Report 5615454-2 (Version None)
Quarter: 2008Q1

REPORT INFORMATION
  Report Type: 
  Country: None (occurrence: None)
  Receive Date: 20080131
  Receipt Date: 20080128
  Transmission Date: 20080703
  Serious: Yes (Other)
  Sender: FDA-Public Use
  Company Number: 08012393

PATIENT
  Age: 60 Year
  Sex: Female

DRUGS (4)
  1. AMIODARONE HCL [Suspect]
     Indication: EXTRASYSTOLES
     Dosage: 200MG, QD, ORAL
     Route: 048
  2. CARBAZOLE (CARBIMAZOLE) [Concomitant]
  3. METHIMAZOLE [Concomitant]
  4. CORTISONE ACETATE [Concomitant]

REACTIONS (1)
  - HYPERTHYROIDISM [None]
